FAERS Safety Report 8616601-0 (Version None)
Quarter: 2012Q3

REPORT INFORMATION
  Report Type: 
  Country: None (occurrence: None)
  Receive Date: 20120823
  Receipt Date: 20120817
  Transmission Date: 20120928
  Serious: Yes (Other)
  Sender: FDA-Public Use
  Company Number: PHHY2012GB071747

PATIENT
  Age: 53 Year
  Sex: Female
  Weight: 65 kg

DRUGS (4)
  1. SERTRALINE HYDROCHLORIDE [Suspect]
     Indication: DEPRESSED MOOD
     Dosage: 1 DF, QD
     Route: 048
     Dates: start: 20120731, end: 20120801
  2. ZAPAIN [Concomitant]
     Indication: PAIN
     Dosage: 4 DF, QD
     Route: 048
     Dates: start: 20120731
  3. ELLESTE-DUET [Concomitant]
     Indication: HORMONE REPLACEMENT THERAPY
     Dosage: 1 DF, QD
     Route: 048
     Dates: start: 20120731
  4. METRONIDAZOLE [Suspect]
     Indication: DENTAL CARE
     Dosage: 3 DF, QD
     Dates: start: 20120727

REACTIONS (3)
  - VISION BLURRED [None]
  - MIGRAINE [None]
  - DIARRHOEA [None]
